FAERS Safety Report 17940168 (Version 1)
Quarter: 2020Q2

REPORT INFORMATION
  Report Type: Spontaneous
  Country: DE (occurrence: DE)
  Receive Date: 20200624
  Receipt Date: 20200624
  Transmission Date: 20200714
  Serious: Yes (Other)
  Sender: FDA-Public Use
  Company Number: NVSC2020DE098436

PATIENT

DRUGS (1)
  1. QUETIAPINE. [Suspect]
     Active Substance: QUETIAPINE
     Indication: DEMENTIA
     Dosage: 75 MG, QD
     Route: 065

REACTIONS (4)
  - Gait disturbance [Recovered/Resolved]
  - Fall [Recovered/Resolved]
  - Parkinson^s disease [Recovered/Resolved]
  - Freezing phenomenon [Recovered/Resolved]
